FAERS Safety Report 8160572-0 (Version None)
Quarter: 2012Q1

REPORT INFORMATION
  Report Type: 
  Country: None (occurrence: None)
  Receive Date: 20120223
  Receipt Date: 20120214
  Transmission Date: 20120608
  Serious: Yes (Hospitalization)
  Sender: FDA-Public Use
  Company Number: US-ASTRAZENECA-2012SE10357

PATIENT
  Age: 573 Month
  Sex: Male

DRUGS (1)
  1. SEROQUEL XR [Suspect]
     Indication: DEPRESSION
     Route: 048

REACTIONS (2)
  - FOOD POISONING [None]
  - NEPHROLITHIASIS [None]
